FAERS Safety Report 14456759 (Version 1)
Quarter: 2018Q1

REPORT INFORMATION
  Report Type: Spontaneous
  Country: US (occurrence: US)
  Receive Date: 20180130
  Receipt Date: 20180130
  Transmission Date: 20180509
  Serious: No
  Sender: FDA-Public Use
  Company Number: US-MIKART, INC.-2041071

PATIENT
  Age: 66 Year
  Sex: Male

DRUGS (3)
  1. COLESTIPOL HYDROCHLORIDE. [Concomitant]
     Active Substance: COLESTIPOL HYDROCHLORIDE
     Dates: start: 2016
  2. BUTALBITAL, ACETAMINOPHEN, AND CAFFEINE [Suspect]
     Active Substance: ACETAMINOPHEN\BUTALBITAL\CAFFEINE
     Indication: HEADACHE
     Route: 048
  3. ZETIA [Concomitant]
     Active Substance: EZETIMIBE
     Dates: start: 2008

REACTIONS (2)
  - Drug ineffective [Unknown]
  - Headache [Unknown]
